FAERS Safety Report 4608265-8 (Version None)
Quarter: 2005Q1

REPORT INFORMATION
  Report Type: 
  Country: None (occurrence: None)
  Receive Date: 20050311
  Receipt Date: 20050228
  Transmission Date: 20050727
  Serious: Yes (Hospitalization, Other)
  Sender: FDA-Public Use
  Company Number: 2005-00727

PATIENT
  Age: 66 Year
  Sex: Female

DRUGS (11)
  1. TRELSTAR DEPOT [Suspect]
     Dosage: 3 MG/28 DAYS, INTRAMUSCULAR
     Route: 030
     Dates: start: 20040608, end: 20041125
  2. DANTROL           (DANAZOL) [Suspect]
     Dosage: 200 MG, BID, ORAL
     Route: 048
     Dates: start: 20040202, end: 20041209
  3. TRAMADOL HCL [Suspect]
     Dosage: 2 DOSAGE FORMS, ORAL
     Route: 048
     Dates: start: 20011105, end: 20041209
  4. CYCLOPHOSPHAMIDE [Suspect]
     Dosage: SEE IMAGE
     Route: 042
     Dates: start: 20011003, end: 20011003
  5. CYCLOPHOSPHAMIDE [Suspect]
     Dosage: SEE IMAGE
     Route: 042
     Dates: start: 20011105, end: 20011105
  6. CYCLOPHOSPHAMIDE [Suspect]
     Dosage: SEE IMAGE
     Route: 042
     Dates: start: 20020105, end: 20020105
  7. CYCLOPHOSPHAMIDE [Suspect]
     Dosage: SEE IMAGE
     Route: 042
     Dates: start: 20041009, end: 20041009
  8. CYCLOPHOSPHAMIDE [Suspect]
     Dosage: SEE IMAGE
     Route: 042
     Dates: start: 20041130, end: 20041130
  9. BIOCARDE [Suspect]
     Dosage: 25 GTT, DAILY, ORAL
     Route: 048
     Dates: start: 20040908, end: 20041125
  10. PREDNISONE TAB [Suspect]
     Dosage: 5 MG, BID, ORAL
     Route: 048
     Dates: start: 20010108
  11. CORTICOSTEROIDS [Concomitant]

REACTIONS (4)
  - CARDIOMYOPATHY [None]
  - PULMONARY OEDEMA [None]
  - RHEUMATOID ARTHRITIS [None]
  - VENTRICULAR DYSFUNCTION [None]
